FAERS Safety Report 5881454-0 (Version None)
Quarter: 2008Q3

REPORT INFORMATION
  Report Type: 
  Country: None (occurrence: None)
  Receive Date: 20080912
  Receipt Date: 20080731
  Transmission Date: 20090109
  Serious: No
  Sender: FDA-Public Use
  Company Number: US-ABBOTT-08P-163-0460376-00

PATIENT
  Sex: Male
  Weight: 81.72 kg

DRUGS (5)
  1. HUMIRA [Suspect]
     Indication: ANKYLOSING SPONDYLITIS
     Route: 058
     Dates: start: 20071101, end: 20080401
  2. HUMIRA [Suspect]
     Route: 058
     Dates: start: 20080701
  3. CELECOXIB [Concomitant]
     Indication: ARTHRITIS
     Dosage: 400MG DAILY, 200MG TWICE A DAY
     Route: 048
  4. ACETAMINOPHEN W/ PROPOXYPHENE HCL [Concomitant]
     Indication: ARTHRALGIA
     Dosage: ONE TO TWO TABLETS AS NEEDED
     Route: 048
  5. ACETAMINOPHEN W/ PROPOXYPHENE HCL [Concomitant]
     Indication: INSOMNIA

REACTIONS (1)
  - TOOTH INFECTION [None]
